FAERS Safety Report 7903776-1 (Version None)
Quarter: 2011Q4

REPORT INFORMATION
  Report Type: 
  Country: None (occurrence: None)
  Receive Date: 20111109
  Receipt Date: 20111103
  Transmission Date: 20120403
  Serious: Yes (Other)
  Sender: FDA-Public Use
  Company Number: IE-ROCHE-777064

PATIENT
  Sex: Female
  Weight: 85.9 kg

DRUGS (1)
  1. XENICAL [Suspect]
     Indication: WEIGHT DECREASED
     Route: 048
     Dates: start: 20110501, end: 20110501

REACTIONS (1)
  - ENURESIS [None]
